FAERS Safety Report 7185338-X (Version None)
Quarter: 2010Q4

REPORT INFORMATION
  Report Type: 
  Country: None (occurrence: None)
  Receive Date: 20101123
  Receipt Date: 20100820
  Transmission Date: 20110411
  Serious: No
  Sender: FDA-Public Use
  Company Number: 017531

PATIENT
  Age: 20 Year
  Sex: Male

DRUGS (3)
  1. CIMZIA [Suspect]
     Dosage: (400 MG 1X/2 WEEKS SUBCUTANEOUS)
     Route: 058
     Dates: start: 20100624
  2. PREDNISONE [Concomitant]
  3. MERCAPTOPURINE [Concomitant]

REACTIONS (3)
  - DIARRHOEA [None]
  - DRUG INEFFECTIVE [None]
  - INTESTINAL FISTULA [None]
